FAERS Safety Report 7606627-8 (Version None)
Quarter: 2011Q3

REPORT INFORMATION
  Report Type: 
  Country: None (occurrence: None)
  Receive Date: 20110713
  Receipt Date: 20110629
  Transmission Date: 20111222
  Serious: Yes (Hospitalization)
  Sender: FDA-Public Use
  Company Number: PHHY2011BR58449

PATIENT
  Sex: Female

DRUGS (5)
  1. ATENOLOL [Suspect]
  2. DIOVAN [Suspect]
     Dosage: 80 MG, UNK
  3. DIOVAN [Suspect]
     Dosage: 320 MG, UNK
  4. MANIVASC [Suspect]
     Dosage: 10 MG, UNK
  5. DIOVAN [Suspect]
     Dosage: 160 MG, UNK

REACTIONS (3)
  - BLOOD PRESSURE FLUCTUATION [None]
  - ARTHRALGIA [None]
  - MALAISE [None]
